FAERS Safety Report 17304808 (Version 1)
Quarter: 2020Q1

REPORT INFORMATION
  Report Type: Spontaneous
  Country: CN (occurrence: CN)
  Receive Date: 20200122
  Receipt Date: 20200122
  Transmission Date: 20200409
  Serious: Yes (Other)
  Sender: FDA-Public Use
  Company Number: CN-BAXTER-2020BAX001137

PATIENT
  Age: 11 Year
  Sex: Female
  Weight: 30 kg

DRUGS (33)
  1. ENDOXAN [Suspect]
     Active Substance: CYCLOPHOSPHAMIDE
     Indication: ACUTE LYMPHOCYTIC LEUKAEMIA
     Dosage: CHEMOTHERAPY FIRST AND SECOND TIME, CYCLOPHOSPHAMIDE + 0.9% SODIUM CHLORIDE
     Route: 041
  2. 0.9% SODIUM CHLORIDE INJECTION [Suspect]
     Active Substance: SODIUM CHLORIDE
     Dosage: CHEMOTHERAPY THIRD TIME, CYCLOPHOSPHAMIDE 1.1 G + 0.9% SODIUM CHLORIDE 300 ML
     Route: 041
     Dates: start: 20191124, end: 20191124
  3. 0.9% SODIUM CHLORIDE INJECTION [Suspect]
     Active Substance: SODIUM CHLORIDE
     Dosage: CHEMOTHERAPY FIRST AND SECOND TIME, CYTARABINE + 0.9% SODIUM CHLORIDE
     Route: 037
  4. 5% GLUCOSE  INJECTION [Suspect]
     Active Substance: DEXTROSE
     Indication: MEDICATION DILUTION
     Dosage: CHEMOTHERAPY FIRST AND SECOND TIME, CYTARABINE + 5% GLUCOSE
     Route: 041
  5. 5% GLUCOSE  INJECTION [Suspect]
     Active Substance: DEXTROSE
     Dosage: DOSE RE-INTRODUCED, CYTARABINE + 5% GLUCOSE
     Route: 041
  6. MERCAPTOPURINE. [Suspect]
     Active Substance: MERCAPTOPURINE
     Dosage: CHEMOTHERAPY THIRD TIME, TABLET, AT BED TIME (HS)
     Route: 048
     Dates: start: 20191124, end: 20191201
  7. METHOTREXATE. [Suspect]
     Active Substance: METHOTREXATE
     Indication: ACUTE LYMPHOCYTIC LEUKAEMIA
     Dosage: CHEMOTHERAPY FIRST AND SECOND TIME, METHOTREXATE + 0.9% SODIUM CHLORIDE
     Route: 037
  8. METHOTREXATE. [Suspect]
     Active Substance: METHOTREXATE
     Dosage: DOSE RE-INTRODUCED, METHOTREXATE + 0.9% SODIUM CHLORIDE
     Route: 037
  9. 0.9% SODIUM CHLORIDE INJECTION [Suspect]
     Active Substance: SODIUM CHLORIDE
     Dosage: DOSE RE-INTRODUCED, CYCLOPHOSPHAMIDE + 0.9% SODIUM CHLORIDE
     Route: 041
  10. 0.9% SODIUM CHLORIDE INJECTION [Suspect]
     Active Substance: SODIUM CHLORIDE
     Dosage: DOSE RE-INTRODUCED, DEXAMETHASONE SODIUM PHOSPHATE + 0.9% SODIUM CHLORIDE
     Route: 037
  11. 0.9% SODIUM CHLORIDE INJECTION [Suspect]
     Active Substance: SODIUM CHLORIDE
     Dosage: CHEMOTHERAPY THIRD TIME, METHOTREXATE 12.5 MG + 0.9% SODIUM CHLORIDE 3 ML
     Route: 037
     Dates: start: 20191124, end: 20191124
  12. DEXAMETHASONE SODIUM PHOSPHATE. [Suspect]
     Active Substance: DEXAMETHASONE SODIUM PHOSPHATE
     Indication: ACUTE LYMPHOCYTIC LEUKAEMIA
     Dosage: CHEMOTHERAPY FIRST AND SECOND TIME, DEXAMETHASONE SODIUM PHOSPHATE + 0.9% SODIUM CHLORIDE
     Route: 037
  13. DEXAMETHASONE SODIUM PHOSPHATE. [Suspect]
     Active Substance: DEXAMETHASONE SODIUM PHOSPHATE
     Dosage: CHEMOTHERAPY THIRD TIME, DEXAMETHASONE SODIUM PHOSPHATE 2.5 MG + 0.9% SODIUM CHLORIDE 3 ML
     Route: 037
     Dates: start: 20191124, end: 20191124
  14. DEXAMETHASONE SODIUM PHOSPHATE. [Suspect]
     Active Substance: DEXAMETHASONE SODIUM PHOSPHATE
     Dosage: DOSE RE-INTRODUCED, DEXAMETHASONE SODIUM PHOSPHATE + 0.9% SODIUM CHLORIDE
     Route: 037
  15. CYTARABINE HYDROCHLORIDE [Suspect]
     Active Substance: CYTARABINE HYDROCHLORIDE
     Dosage: DOSE RE-INTRODUCED, CYTARABINE + 0.9% SODIUM CHLORIDE
     Route: 037
  16. MERCAPTOPURINE. [Suspect]
     Active Substance: MERCAPTOPURINE
     Indication: ACUTE LYMPHOCYTIC LEUKAEMIA
     Dosage: CHEMOTHERAPY FIRST AND SECOND TIME, TABLET, AT BED TIME (HS)
     Route: 048
  17. MERCAPTOPURINE. [Suspect]
     Active Substance: MERCAPTOPURINE
     Dosage: DOSE RE-INTRODUCED, TABLET, AT BED TIME (HS)
     Route: 048
  18. 0.9% SODIUM CHLORIDE INJECTION [Suspect]
     Active Substance: SODIUM CHLORIDE
     Dosage: CHEMOTHERAPY FIRST AND SECOND TIME, DEXAMETHASONE SODIUM PHOSPHATE + 0.9% SODIUM CHLORIDE
     Route: 037
  19. 0.9% SODIUM CHLORIDE INJECTION [Suspect]
     Active Substance: SODIUM CHLORIDE
     Dosage: CHEMOTHERAPY THIRD TIME, DEXAMETHASONE SODIUM PHOSPHATE 2.5 MG + 0.9% SODIUM CHLORIDE 3 ML
     Route: 037
     Dates: start: 20191124, end: 20191124
  20. 0.9% SODIUM CHLORIDE INJECTION [Suspect]
     Active Substance: SODIUM CHLORIDE
     Dosage: CHEMOTHERAPY FIRST AND SECOND TIME, METHOTREXATE + 0.9% SODIUM CHLORIDE
     Route: 037
  21. 0.9% SODIUM CHLORIDE INJECTION [Suspect]
     Active Substance: SODIUM CHLORIDE
     Indication: MEDICATION DILUTION
     Dosage: CHEMOTHERAPY FIRST AND SECOND TIME, CYCLOPHOSPHAMIDE + 0.9% SODIUM CHLORIDE
     Route: 041
  22. 0.9% SODIUM CHLORIDE INJECTION [Suspect]
     Active Substance: SODIUM CHLORIDE
     Dosage: CHEMOTHERAPY THIRD TIME, CYTARABINE 0.035 G + 0.9% SODIUM CHLORIDE 3 ML
     Route: 037
     Dates: start: 20191124, end: 20191124
  23. 5% GLUCOSE  INJECTION [Suspect]
     Active Substance: DEXTROSE
     Dosage: CHEMOTHERAPY THIRD TIME, CYTARABINE 0.055 G + 5% GLUCOSE 200 ML
     Route: 041
     Dates: start: 20191124, end: 20191201
  24. CYTARABINE HYDROCHLORIDE [Suspect]
     Active Substance: CYTARABINE HYDROCHLORIDE
     Indication: ACUTE LYMPHOCYTIC LEUKAEMIA
     Dosage: CHEMOTHERAPY FIRST AND SECOND TIME, CYTARABINE + 5% GLUCOSE
     Route: 041
  25. CYTARABINE HYDROCHLORIDE [Suspect]
     Active Substance: CYTARABINE HYDROCHLORIDE
     Dosage: DOSE RE-INTRODUCED, CYTARABINE + 5% GLUCOSE
     Route: 041
  26. ENDOXAN [Suspect]
     Active Substance: CYCLOPHOSPHAMIDE
     Dosage: DOSE RE-INTRODUCED, CYCLOPHOSPHAMIDE + 0.9% SODIUM CHLORIDE
     Route: 041
  27. CYTARABINE HYDROCHLORIDE [Suspect]
     Active Substance: CYTARABINE HYDROCHLORIDE
     Dosage: CHEMOTHERAPY FIRST AND SECOND TIME, CYTARABINE + 0.9% SODIUM CHLORIDE
     Route: 037
  28. CYTARABINE HYDROCHLORIDE [Suspect]
     Active Substance: CYTARABINE HYDROCHLORIDE
     Dosage: CHEMOTHERAPY THIRD TIME, CYTARABINE 0.055 G + 5% GLUCOSE 200 ML
     Route: 041
     Dates: start: 20191124, end: 20191201
  29. METHOTREXATE. [Suspect]
     Active Substance: METHOTREXATE
     Dosage: CHEMOTHERAPY THIRD TIME, METHOTREXATE 12.5 MG + 0.9% SODIUM CHLORIDE 3 ML
     Route: 037
     Dates: start: 20191124, end: 20191124
  30. ENDOXAN [Suspect]
     Active Substance: CYCLOPHOSPHAMIDE
     Dosage: CHEMOTHERAPY THIRD TIME, CYCLOPHOSPHAMIDE 1.1 G + 0.9% SODIUM CHLORIDE 300 ML
     Route: 041
     Dates: start: 20191124, end: 20191124
  31. 0.9% SODIUM CHLORIDE INJECTION [Suspect]
     Active Substance: SODIUM CHLORIDE
     Dosage: DOSE RE-INTRODUCED, METHOTREXATE + 0.9% SODIUM CHLORIDE
     Route: 037
  32. CYTARABINE HYDROCHLORIDE [Suspect]
     Active Substance: CYTARABINE HYDROCHLORIDE
     Dosage: CHEMOTHERAPY THIRD TIME, CYTARABINE 0.035 G + 0.9% SODIUM CHLORIDE 3 ML
     Route: 037
     Dates: start: 20191124, end: 20191124
  33. 0.9% SODIUM CHLORIDE INJECTION [Suspect]
     Active Substance: SODIUM CHLORIDE
     Dosage: DOSE RE-INTRODUCED, CYTARABINE + 0.9% SODIUM CHLORIDE
     Route: 037

REACTIONS (1)
  - Bone marrow failure [Recovering/Resolving]

NARRATIVE: CASE EVENT DATE: 20191203
